FAERS Safety Report 6819374-7 (Version None)
Quarter: 2010Q3

REPORT INFORMATION
  Report Type: 
  Country: None (occurrence: None)
  Receive Date: 20100701
  Receipt Date: 20100621
  Transmission Date: 20110219
  Serious: Yes (Hospitalization)
  Sender: FDA-Public Use
  Company Number: CRC-10-093

PATIENT
  Age: 19 Year
  Sex: Male
  Weight: 63.1 kg

DRUGS (3)
  1. PHENYTOIN SODIUM [Suspect]
     Indication: EPILEPSY
     Dosage: 500 MG DAILY, ORAL
     Route: 048
     Dates: start: 20080804, end: 20100610
  2. PLACEBO [Suspect]
     Indication: EPILEPSY
     Dosage: 6 DAILY, ORAL
     Route: 048
     Dates: start: 20100512
  3. ZONISAMIDE [Concomitant]

REACTIONS (10)
  - ABNORMAL BEHAVIOUR [None]
  - AGITATION [None]
  - AMMONIA ABNORMAL [None]
  - BALANCE DISORDER [None]
  - CONFUSIONAL STATE [None]
  - DELIRIUM [None]
  - DIZZINESS [None]
  - ELECTROENCEPHALOGRAM ABNORMAL [None]
  - HALLUCINATION, VISUAL [None]
  - HEPATIC ENZYME INCREASED [None]
